FAERS Safety Report 18942331 (Version 2)
Quarter: 2021Q1

REPORT INFORMATION
  Report Type: Spontaneous
  Country: GB (occurrence: GB)
  Receive Date: 20210225
  Receipt Date: 20210303
  Transmission Date: 20210420
  Serious: Yes (Other)
  Sender: FDA-Public Use
  Company Number: GB-009507513-2102GBR004701

PATIENT
  Age: 63 Year
  Sex: Male

DRUGS (3)
  1. ONCOTICE [Suspect]
     Active Substance: BACILLUS CALMETTE-GUERIN SUBSTRAIN TICE LIVE ANTIGEN
     Dosage: 2?8 X 10^8 WEEKLY
     Route: 043
     Dates: start: 20210209
  2. ONCOTICE [Suspect]
     Active Substance: BACILLUS CALMETTE-GUERIN SUBSTRAIN TICE LIVE ANTIGEN
     Dosage: 2?8 X 10^8 WEEKLY
     Route: 043
     Dates: start: 20210209
  3. ONCOTICE [Suspect]
     Active Substance: BACILLUS CALMETTE-GUERIN SUBSTRAIN TICE LIVE ANTIGEN
     Indication: BLADDER CANCER
     Dosage: 2?8 X 10^8 WEEKLY
     Route: 043
     Dates: start: 20210209

REACTIONS (4)
  - Thrombosis [Unknown]
  - Adverse reaction [Unknown]
  - Haematuria [Unknown]
  - Product storage error [Unknown]

NARRATIVE: CASE EVENT DATE: 202102
